FAERS Safety Report 7083846-3 (Version None)
Quarter: 2010Q4

REPORT INFORMATION
  Report Type: 
  Country: None (occurrence: None)
  Receive Date: 20101104
  Receipt Date: 20101102
  Transmission Date: 20110411
  Serious: Yes (Hospitalization)
  Sender: FDA-Public Use
  Company Number: FR-BRISTOL-MYERS SQUIBB COMPANY-15365919

PATIENT
  Age: 41 Year
  Sex: Female

DRUGS (4)
  1. BICNU [Suspect]
     Indication: GLIOMA
     Route: 042
     Dates: start: 20090911, end: 20100810
  2. TEMODAL [Suspect]
     Indication: GLIOMA
     Route: 042
     Dates: start: 20090626, end: 20100810
  3. OROKEN [Suspect]
     Indication: URINARY TRACT INFECTION
     Route: 048
     Dates: start: 20100918, end: 20100927
  4. AUGMENTIN [Suspect]
     Indication: URINARY TRACT INFECTION
     Dosage: 1 DF = AUGMENTIN 2G/200MG
     Dates: start: 20100901, end: 20100918

REACTIONS (1)
  - HAEMOLYTIC ANAEMIA [None]
